FAERS Safety Report 20210349 (Version 4)
Quarter: 2022Q4

REPORT INFORMATION
  Report Type: Other
  Country: GB (occurrence: GB)
  Receive Date: 20211221
  Receipt Date: 20221012
  Transmission Date: 20230113
  Serious: Yes (Hospitalization, Other)
  Sender: FDA-Public Use
  Company Number: GB-CELGENE-GBR-20211107738

PATIENT

DRUGS (48)
  1. DEXAMETHASONE [Suspect]
     Active Substance: DEXAMETHASONE
     Indication: Plasma cell myeloma
     Dosage: 20 MG, QD
     Route: 048
     Dates: start: 20210611, end: 20210612
  2. DEXAMETHASONE [Suspect]
     Active Substance: DEXAMETHASONE
     Dosage: 20 MG, QD
     Route: 048
     Dates: start: 20210624
  3. DEXAMETHASONE [Suspect]
     Active Substance: DEXAMETHASONE
     Dosage: 20 MG, QD,TABLET
     Route: 048
     Dates: start: 20210611, end: 20210622
  4. BORTEZOMIB [Suspect]
     Active Substance: BORTEZOMIB
     Indication: Plasma cell myeloma
     Dosage: 2.25 MG
     Route: 058
     Dates: start: 20210611, end: 20210611
  5. BORTEZOMIB [Suspect]
     Active Substance: BORTEZOMIB
     Dosage: 2.25 MG
     Route: 058
     Dates: start: 20210621
  6. POMALYST [Suspect]
     Active Substance: POMALIDOMIDE
     Indication: Plasma cell myeloma
     Dosage: 4 MG, QD
     Route: 048
     Dates: start: 20210611, end: 20210613
  7. POMALYST [Suspect]
     Active Substance: POMALIDOMIDE
     Dosage: 4 MG, QD
     Route: 048
     Dates: start: 20210611, end: 20210624
  8. ACYCLOVIR [Concomitant]
     Active Substance: ACYCLOVIR
     Indication: Antiviral prophylaxis
     Dosage: 400 MG, BID
     Route: 048
  9. AMITRIPTYLINE [Concomitant]
     Active Substance: AMITRIPTYLINE
     Indication: Peripheral sensory neuropathy
     Dosage: 20 MG, QD
     Route: 048
     Dates: start: 20210414, end: 20211103
  10. CARBOMER [Concomitant]
     Active Substance: CARBOMER
     Indication: Dry eye
     Dosage: 1 GTT DROPS, PRN, 1 GTT, AS REQUIRED
     Route: 047
     Dates: start: 20170130, end: 20210613
  11. CARBOMER [Concomitant]
     Active Substance: CARBOMER
     Dosage: UNK
     Route: 047
     Dates: start: 20171030, end: 20210613
  12. CYCLOPHOSPHAMIDE [Concomitant]
     Active Substance: CYCLOPHOSPHAMIDE
     Indication: Plasma cell myeloma
     Dosage: UNK
     Route: 065
  13. DALTEPARIN [Concomitant]
     Active Substance: DALTEPARIN
     Indication: Thrombosis prophylaxis
     Dosage: UNK UNK, QD
     Route: 058
     Dates: end: 20210612
  14. BUDESONIDE\FORMOTEROL [Concomitant]
     Active Substance: BUDESONIDE\FORMOTEROL
     Indication: Asthma prophylaxis
     Dosage: (160/4.5)
     Route: 065
     Dates: start: 20150911
  15. BUDESONIDE\FORMOTEROL [Concomitant]
     Active Substance: BUDESONIDE\FORMOTEROL
     Dosage: UNK
     Route: 065
  16. FEXOFENADINE [Concomitant]
     Active Substance: FEXOFENADINE HYDROCHLORIDE
     Indication: Seasonal allergy
     Dosage: 180 MG, QD
     Route: 048
     Dates: start: 20050901
  17. FEXOFENADINE [Concomitant]
     Active Substance: FEXOFENADINE HYDROCHLORIDE
     Dosage: 180 MG, QD
     Route: 048
     Dates: start: 20150901
  18. FLUDARABINE [Concomitant]
     Active Substance: FLUDARABINE PHOSPHATE
     Indication: Plasma cell myeloma
     Dosage: UNK
     Route: 065
  19. FUROSEMIDE [Concomitant]
     Active Substance: FUROSEMIDE
     Indication: Diuretic therapy
     Dosage: UNK
     Route: 048
     Dates: start: 20210426, end: 20210613
  20. GABAPENTIN [Concomitant]
     Active Substance: GABAPENTIN
     Indication: Peripheral sensory neuropathy
     Dosage: 300 MG, TID
     Route: 048
     Dates: start: 20210507, end: 20210817
  21. GABAPENTIN [Concomitant]
     Active Substance: GABAPENTIN
     Dosage: 600 MG, QD
     Route: 048
  22. GABAPENTIN [Concomitant]
     Active Substance: GABAPENTIN
     Dosage: 300 MG, BID
     Route: 048
     Dates: end: 20210729
  23. MONTELUKAST [Concomitant]
     Active Substance: MONTELUKAST SODIUM
     Indication: Asthma prophylaxis
     Dosage: 10 MG, QD
     Route: 048
     Dates: start: 20210524
  24. MORPHINE SULFATE [Concomitant]
     Active Substance: MORPHINE SULFATE
     Indication: Back pain
     Dosage: 25 MG, BID
     Route: 048
     Dates: start: 20210613
  25. MORPHINE SULFATE [Concomitant]
     Active Substance: MORPHINE SULFATE
     Dosage: 60 MG, BID
     Route: 048
     Dates: start: 20210604, end: 20210626
  26. MORPHINE SULFATE [Concomitant]
     Active Substance: MORPHINE SULFATE
     Dosage: AS REQUIRED
     Route: 048
     Dates: start: 20210614, end: 20210616
  27. MORPHINE SULFATE [Concomitant]
     Active Substance: MORPHINE SULFATE
     Dosage: 25 MG, BID
     Route: 048
     Dates: end: 20210613
  28. MORPHINE SULFATE [Concomitant]
     Active Substance: MORPHINE SULFATE
     Dosage: 60 MG, QD
     Route: 048
     Dates: start: 20210629, end: 20210630
  29. MORPHINE SULFATE [Concomitant]
     Active Substance: MORPHINE SULFATE
     Dosage: 7.5 MG, BID (15 MILLIGRAM)
     Route: 048
     Dates: end: 20210613
  30. NITROFURANTOIN [Concomitant]
     Active Substance: NITROFURANTOIN
     Indication: Urinary tract infection
     Dosage: 100 MG, BID
     Route: 048
     Dates: start: 20210706, end: 20210708
  31. ACETAMINOPHEN [Concomitant]
     Active Substance: ACETAMINOPHEN
     Indication: Back pain
     Dosage: 1 G, QID
     Route: 048
     Dates: start: 20140324
  32. ALBUTEROL [Concomitant]
     Active Substance: ALBUTEROL
     Indication: Asthma prophylaxis
     Dosage: 100 MCG, 100 MCG,1 IN 1 AS REQUIRED
     Route: 055
  33. ALBUTEROL [Concomitant]
     Active Substance: ALBUTEROL
     Dosage: UNK
     Route: 065
  34. CLODRONIC ACID [Concomitant]
     Active Substance: CLODRONIC ACID
     Indication: Prophylaxis
     Dosage: 800 MG, BID, 1600 MILLIGRAM
     Route: 048
     Dates: start: 20210426, end: 20210614
  35. COTRIMOXAZOLE [Concomitant]
     Active Substance: SULFAMETHOXAZOLE\TRIMETHOPRIM
     Indication: Antifungal prophylaxis
     Dosage: 800/160MG
     Route: 048
     Dates: start: 20210630, end: 20210726
  36. COTRIMOXAZOLE [Concomitant]
     Active Substance: SULFAMETHOXAZOLE\TRIMETHOPRIM
     Dosage: 800/160MG
     Route: 048
     Dates: end: 20210630
  37. COTRIMOXAZOLE [Concomitant]
     Active Substance: SULFAMETHOXAZOLE\TRIMETHOPRIM
     Dosage: UNK
     Route: 048
     Dates: start: 20210630, end: 20210726
  38. COTRIMOXAZOLE [Concomitant]
     Active Substance: SULFAMETHOXAZOLE\TRIMETHOPRIM
     Dosage: UNK UNK, WEEKLY (800/160MG)
     Route: 048
     Dates: end: 20210630
  39. FLUCONAZOLE [Concomitant]
     Active Substance: FLUCONAZOLE
     Indication: Antifungal prophylaxis
     Dosage: 100 MG, QD
     Route: 048
     Dates: start: 20210613
  40. POLYETHYLENE GLYCOL 3350\POTASSIUM CHLORIDE\SODIUM BICARBONATE\SODIUM [Concomitant]
     Active Substance: POLYETHYLENE GLYCOL 3350\POTASSIUM CHLORIDE\SODIUM BICARBONATE\SODIUM CHLORIDE
     Indication: Constipation
     Dosage: UNK
     Route: 048
     Dates: start: 20210426, end: 20210701
  41. OMEPRAZOLE [Concomitant]
     Active Substance: OMEPRAZOLE
     Indication: Hiatus hernia
     Dosage: 20 MG, QD
     Route: 048
     Dates: start: 20100820
  42. ONDANSETRON [Concomitant]
     Active Substance: ONDANSETRON
     Indication: Antiemetic supportive care
     Dosage: 4 MG, BID, 8 MILLIGRAM
     Route: 048
     Dates: start: 20210701, end: 20210725
  43. MORPHINE SULFATE [Concomitant]
     Active Substance: MORPHINE SULFATE
     Indication: Back pain
     Dosage: 7.5 MG, BID
     Route: 048
     Dates: end: 20210613
  44. MORPHINE SULFATE [Concomitant]
     Active Substance: MORPHINE SULFATE
     Indication: Pain
     Dosage: 60 MG, BID
     Route: 048
     Dates: start: 20210604, end: 20210626
  45. SENNA [Concomitant]
     Active Substance: SENNA LEAF\SENNOSIDES\SENNOSIDES A AND B
     Indication: Constipation
     Dosage: 15 MG,1 IN 1 AS REQUIRED
     Route: 048
     Dates: end: 20210613
  46. SENNA [Concomitant]
     Active Substance: SENNA LEAF\SENNOSIDES\SENNOSIDES A AND B
     Dosage: UNK
     Route: 048
  47. BUDESONIDE\FORMOTEROL FUMARATE [Concomitant]
     Active Substance: BUDESONIDE\FORMOTEROL FUMARATE
     Indication: Asthma prophylaxis
     Route: 065
  48. BUDESONIDE\FORMOTEROL FUMARATE [Concomitant]
     Active Substance: BUDESONIDE\FORMOTEROL FUMARATE
     Dosage: UNK, BID (160/4.5)
     Dates: start: 20150911

REACTIONS (2)
  - Pneumonia [Recovered/Resolved]
  - Lower respiratory tract infection [Recovered/Resolved]

NARRATIVE: CASE EVENT DATE: 20210613
